FAERS Safety Report 10402534 (Version 1)
Quarter: 2014Q3

REPORT INFORMATION
  Report Type: Spontaneous
  Country: US (occurrence: AU)
  Receive Date: 20140822
  Receipt Date: 20140822
  Transmission Date: 20150326
  Serious: No
  Sender: FDA-Public Use
  Company Number: AU-FRI-1000070061

PATIENT
  Age: 69 Year
  Sex: Female

DRUGS (3)
  1. SAPHRIS [Suspect]
     Active Substance: ASENAPINE MALEATE
     Indication: BIPOLAR I DISORDER
     Dosage: 5 MG
     Route: 060
     Dates: start: 2014, end: 2014
  2. LITHIUM [Concomitant]
     Active Substance: LITHIUM CARBONATE
  3. SAPHRIS [Suspect]
     Active Substance: ASENAPINE MALEATE
     Dosage: 10 MG
     Route: 060
     Dates: start: 2014

REACTIONS (5)
  - Swelling face [Unknown]
  - Underdose [Recovered/Resolved]
  - Carpal tunnel syndrome [Recovered/Resolved]
  - Inappropriate schedule of drug administration [Not Recovered/Not Resolved]
  - Abdominal distension [Unknown]
